FAERS Safety Report 6210667-3 (Version None)
Quarter: 2009Q2

REPORT INFORMATION
  Report Type: 
  Country: None (occurrence: None)
  Receive Date: 20090601
  Receipt Date: 20090529
  Transmission Date: 20091009
  Serious: Yes (Hospitalization)
  Sender: FDA-Public Use
  Company Number: FR-WYE-G03761509

PATIENT
  Sex: Male

DRUGS (1)
  1. RHINADVIL [Suspect]
     Dosage: ^A FEW TABLETS^
     Route: 048
     Dates: start: 20090211, end: 20090212

REACTIONS (3)
  - COLITIS ISCHAEMIC [None]
  - COLITIS ULCERATIVE [None]
  - COLONIC HAEMATOMA [None]
